FAERS Safety Report 14730231 (Version 1)
Quarter: 2018Q2

REPORT INFORMATION
  Report Type: Spontaneous
  Country: US (occurrence: US)
  Receive Date: 20180406
  Receipt Date: 20180406
  Transmission Date: 20180711
  Serious: No
  Sender: FDA-Public Use
  Company Number: US-MYLANLABS-2018M1018089

PATIENT
  Sex: Female
  Weight: 55 kg

DRUGS (1)
  1. LORAZEPAM TABLETS USP [Suspect]
     Active Substance: LORAZEPAM
     Indication: INSOMNIA
     Dosage: UNK
     Route: 048

REACTIONS (5)
  - Drug ineffective [Not Recovered/Not Resolved]
  - Palpitations [Recovered/Resolved]
  - Depression [Not Recovered/Not Resolved]
  - Product quality issue [Unknown]
  - Myalgia [Not Recovered/Not Resolved]
